FAERS Safety Report 10835229 (Version 2)
Quarter: 2015Q1

REPORT INFORMATION
  Report Type: Spontaneous
  Country: AU (occurrence: AU)
  Receive Date: 20150219
  Receipt Date: 20150319
  Transmission Date: 20150721
  Serious: Yes (Hospitalization, Other)
  Sender: FDA-Public Use
  Company Number: AU-MERCK-1502AUS006208

PATIENT
  Age: 43 Year
  Sex: Male

DRUGS (2)
  1. PEGINTERFERON ALFA-2A [Suspect]
     Active Substance: PEGINTERFERON ALFA-2A
     Indication: CHRONIC HEPATITIS C
     Dosage: UNK
     Dates: start: 201107
  2. RIBAVIRIN. [Suspect]
     Active Substance: RIBAVIRIN
     Indication: CHRONIC HEPATITIS C
     Dosage: UNK
     Route: 048
     Dates: start: 201107

REACTIONS (5)
  - Cardiac failure [Unknown]
  - Pulmonary arterial hypertension [Unknown]
  - Coronary artery occlusion [Unknown]
  - Pulmonary artery dilatation [Unknown]
  - Thrombocytopenia [Unknown]
